FAERS Safety Report 4911351-6 (Version None)
Quarter: 2006Q1

REPORT INFORMATION
  Report Type: 
  Country: None (occurrence: None)
  Receive Date: 20060207
  Receipt Date: 20060125
  Transmission Date: 20060701
  Serious: Yes (Other)
  Sender: FDA-Public Use
  Company Number: 2006BH001363

PATIENT
  Sex: Female

DRUGS (2)
  1. TISSEEL VH KIT [Suspect]
     Indication: INTRACRANIAL HYPOTENSION
     Dosage: UNKNOWN; UNK; TOP
     Route: 061
     Dates: start: 20060101
  2. GELFOAM [Concomitant]

REACTIONS (1)
  - MENINGITIS ASEPTIC [None]
